FAERS Safety Report 7800857-8 (Version None)
Quarter: 2011Q4

REPORT INFORMATION
  Report Type: 
  Country: None (occurrence: None)
  Receive Date: 20111006
  Receipt Date: 20111001
  Transmission Date: 20120403
  Serious: Yes (Hospitalization)
  Sender: FDA-Public Use
  Company Number: US-GILEAD-2011-0044636

PATIENT

DRUGS (4)
  1. ADCIRCA [Concomitant]
  2. EPOPROSTENOL SODIUM [Concomitant]
  3. REVATIO [Concomitant]
  4. LETAIRIS [Suspect]
     Indication: PULMONARY HYPERTENSION
     Dosage: 10 MG, UNK
     Route: 048
     Dates: start: 20110225

REACTIONS (1)
  - PULMONARY ARTERIAL HYPERTENSION [None]
